FAERS Safety Report 18126960 (Version 1)
Quarter: 2020Q3

REPORT INFORMATION
  Report Type: Spontaneous
  Country: CN (occurrence: CN)
  Receive Date: 20200810
  Receipt Date: 20200810
  Transmission Date: 20201103
  Serious: Yes (Other)
  Sender: FDA-Public Use
  Company Number: CN-BAXTER-2020BAX016045

PATIENT
  Age: 62 Year
  Sex: Female
  Weight: 51 kg

DRUGS (6)
  1. FAMAXIN (EPIRUBICIN HYDROCHLORIDE) [Suspect]
     Active Substance: EPIRUBICIN HYDROCHLORIDE
     Indication: BREAST CANCER FEMALE
     Dosage: FIRST EC ADJUVANT CHEMOTHERAPY, DAY 1, FAMAXIN 140 MG + 0.9% SODIUM CHLORIDE 500 ML
     Route: 041
     Dates: start: 20200717, end: 20200717
  2. ENDOXAN [Suspect]
     Active Substance: CYCLOPHOSPHAMIDE
     Indication: BREAST CANCER FEMALE
     Dosage: FIRST EC ADJUVANT CHEMOTHERAPY, DAY 1, ENDOXAN 900 MG + 0.9% SODIUM CHLORIDE 100 ML
     Route: 041
     Dates: start: 20200717, end: 20200717
  3. 0.9% SODIUM CHLORIDE INJECTION [Suspect]
     Active Substance: SODIUM CHLORIDE
     Indication: MEDICATION DILUTION
     Dosage: FIRST EC ADJUVANT CHEMOTHERAPY, DAY 1, ENDOXAN 900 MG + 0.9% SODIUM CHLORIDE 100 ML
     Route: 041
     Dates: start: 20200717, end: 20200717
  4. 0.9% SODIUM CHLORIDE INJECTION [Suspect]
     Active Substance: SODIUM CHLORIDE
     Dosage: FIRST EC ADJUVANT CHEMOTHERAPY, DAY 1, FAMAXIN 140 MG + 0.9% SODIUM CHLORIDE 500 ML
     Route: 041
     Dates: start: 20200717, end: 20200717
  5. JINYOULI [Concomitant]
     Indication: DRUG THERAPY
     Dosage: LONG?ACTING
     Route: 065
     Dates: start: 20200717
  6. JIN [Concomitant]
     Indication: PROPHYLAXIS
     Dosage: SELF?PREPARED
     Route: 065
     Dates: start: 20200718

REACTIONS (1)
  - Platelet count decreased [Unknown]

NARRATIVE: CASE EVENT DATE: 20200720
